FAERS Safety Report 24610291 (Version 1)
Quarter: 2024Q4

REPORT INFORMATION
  Report Type: Other
  Country: CN (occurrence: CN)
  Receive Date: 20241112
  Receipt Date: 20241112
  Transmission Date: 20250114
  Serious: Yes (Hospitalization)
  Sender: INCYTE
  Company Number: CN-002147023-NVSC2024CN216431

PATIENT

DRUGS (3)
  1. RUXOLITINIB [Suspect]
     Active Substance: RUXOLITINIB
     Indication: Chemotherapy
     Dosage: 10 MG, BID
     Route: 048
     Dates: start: 20241011, end: 20241024
  2. STANOZOLOL [Suspect]
     Active Substance: STANOZOLOL
     Indication: Chemotherapy
     Dosage: 2 MG, BID
     Route: 048
     Dates: start: 20241011, end: 20241024
  3. ERYTHROPOIETIN [Suspect]
     Active Substance: ERYTHROPOIETIN
     Indication: White blood cell count increased
     Dosage: 8000 IU, Q3W
     Route: 042
     Dates: start: 20241011

REACTIONS (2)
  - Platelet count decreased [Recovering/Resolving]
  - White blood cell count decreased [Recovering/Resolving]

NARRATIVE: CASE EVENT DATE: 20241016
